FAERS Safety Report 23681275 (Version 2)
Quarter: 2024Q3

REPORT INFORMATION
  Report Type: Spontaneous
  Country: IT (occurrence: IT)
  Receive Date: 20240328
  Receipt Date: 20240821
  Transmission Date: 20241016
  Serious: Yes (Life-Threatening, Hospitalization, Other)
  Sender: CIPLA
  Company Number: None

PATIENT

DRUGS (11)
  1. VALGANCICLOVIR [Suspect]
     Active Substance: VALGANCICLOVIR
     Indication: Antiviral prophylaxis
     Dosage: UNK (CMV REACTIVATION TREATMENT)
     Route: 065
  2. VALGANCICLOVIR [Suspect]
     Active Substance: VALGANCICLOVIR
     Indication: Cytomegalovirus infection reactivation
     Dosage: UNK (FOR OROPHARYNGEAL CANDIDIASIS AND CYTOMEGALOVIRUS (CMV) PROPHYLAXIS)
     Route: 065
  3. METHYLPREDNISOLONE [Suspect]
     Active Substance: METHYLPREDNISOLONE
     Indication: Immunosuppressant drug therapy
     Dosage: UNK
     Route: 042
  4. AMBISOME [Suspect]
     Active Substance: AMPHOTERICIN B
     Indication: Mucormycosis
     Dosage: 5 MILLIGRAM/KILOGRAM, QD
     Route: 042
  5. POSACONAZOLE [Suspect]
     Active Substance: POSACONAZOLE
     Indication: Mucormycosis
     Dosage: 300 MILLIGRAM, QD (100 MG, TID, TARGET TROUGH 1-2 UG/ML)
     Route: 042
  6. TACROLIMUS [Suspect]
     Active Substance: TACROLIMUS
     Indication: Immunosuppressant drug therapy
     Dosage: 500 MILLIGRAM, 0.5 DAY (TARGET TROUGH LEVEL OF 4 TO 7 NG/ML)
     Route: 048
  7. MYCOPHENOLATE MOFETIL [Suspect]
     Active Substance: MYCOPHENOLATE MOFETIL
     Indication: Immunosuppressant drug therapy
     Dosage: 500 MILLIGRAM, QD (250 MG, BID)
     Route: 065
  8. MYCOPHENOLATE MOFETIL [Suspect]
     Active Substance: MYCOPHENOLATE MOFETIL
     Indication: Renal and liver transplant
     Dosage: 1000 MILLIGRAM, QD (500 MG, BID)
     Route: 065
  9. MYCOPHENOLATE MOFETIL [Suspect]
     Active Substance: MYCOPHENOLATE MOFETIL
     Dosage: 500 MILLIGRAM, QD (250 MG, BID)
     Route: 065
  10. NYSTATIN [Concomitant]
     Active Substance: NYSTATIN
     Indication: Antifungal prophylaxis
     Dosage: UNK
     Route: 065
  11. NYSTATIN [Concomitant]
     Active Substance: NYSTATIN
     Indication: Oropharyngeal candidiasis

REACTIONS (19)
  - Faeces discoloured [Recovered/Resolved]
  - Gastric ulcer [Recovering/Resolving]
  - Kidney transplant rejection [Recovering/Resolving]
  - Mucormycosis [Recovered/Resolved]
  - Cytomegalovirus infection reactivation [Unknown]
  - Abdominal tenderness [Recovered/Resolved]
  - Melaena [Recovered/Resolved]
  - Renal impairment [Recovering/Resolving]
  - Abdominal pain upper [Recovered/Resolved]
  - Upper gastrointestinal haemorrhage [Unknown]
  - Renal tubular necrosis [Recovered/Resolved]
  - Chronic gastritis [Unknown]
  - BK virus infection [Recovered/Resolved]
  - Oral disorder [Unknown]
  - Gastrointestinal disorder [Recovered/Resolved]
  - Internal haemorrhage [Unknown]
  - Shock haemorrhagic [Unknown]
  - Vomiting [Recovered/Resolved]
  - Decreased appetite [Recovered/Resolved]
